FAERS Safety Report 11090817 (Version 1)
Quarter: 2015Q2

REPORT INFORMATION
  Report Type: Spontaneous
  Country: US (occurrence: US)
  Receive Date: 20150505
  Receipt Date: 20150505
  Transmission Date: 20150821
  Serious: Yes (Hospitalization)
  Sender: FDA-Public Use
  Company Number: US-MYLANLABS-2015M1014973

PATIENT

DRUGS (14)
  1. VORICONAZOLE. [Interacting]
     Active Substance: VORICONAZOLE
     Route: 050
  2. ATOMOXETINE [Concomitant]
     Active Substance: ATOMOXETINE
     Dosage: 80 MG/DAY
     Route: 065
  3. OXYCODONE [Concomitant]
     Active Substance: OXYCODONE
     Indication: ANALGESIC THERAPY
     Dosage: AS NEEDED
     Route: 065
  4. VANCOMYCIN [Concomitant]
     Active Substance: VANCOMYCIN
     Dosage: GOAL TROUGH OF 15-20 MCG/ML
     Route: 065
  5. VECURONIUM BROMIDE. [Concomitant]
     Active Substance: VECURONIUM BROMIDE
     Indication: PARALYSIS
     Route: 065
  6. CLONAZEPAM. [Concomitant]
     Active Substance: CLONAZEPAM
     Route: 065
  7. LORAZEPAM. [Concomitant]
     Active Substance: LORAZEPAM
     Indication: SEDATION
     Route: 042
  8. LORAZEPAM. [Concomitant]
     Active Substance: LORAZEPAM
     Dosage: AS NEEDED
     Route: 042
  9. DIAZEPAM. [Concomitant]
     Active Substance: DIAZEPAM
     Indication: SEDATION
     Route: 065
  10. METHADONE [Interacting]
     Active Substance: METHADONE HYDROCHLORIDE
     Indication: ANALGESIC THERAPY
     Route: 065
  11. LORAZEPAM. [Concomitant]
     Active Substance: LORAZEPAM
     Route: 050
  12. CEFEPIME [Concomitant]
     Active Substance: CEFEPIME\CEFEPIME HYDROCHLORIDE
     Route: 065
  13. FENTANYL. [Suspect]
     Active Substance: FENTANYL
     Indication: ANALGESIC THERAPY
     Dosage: 150 MCG/HOUR
     Route: 065
  14. FENTANYL. [Interacting]
     Active Substance: FENTANYL
     Dosage: DOSE INCREASED UP TO 200 MCG/HOUR; ADDITIONAL 150 MCG EVERY 2 HOURS (AS NEEDED)
     Route: 065

REACTIONS (2)
  - Serotonin syndrome [Recovered/Resolved]
  - Drug interaction [Unknown]
